FAERS Safety Report 25520393 (Version 2)
Quarter: 2025Q4

REPORT INFORMATION
  Report Type: Spontaneous
  Country: None (occurrence: None)
  Receive Date: 20250704
  Receipt Date: 20251126
  Transmission Date: 20260117
  Serious: Yes (Other)
  Sender: ORGANON
  Company Number: EU-ORGANON-O2302ITA001838

PATIENT
  Sex: Male

DRUGS (2)
  1. PROPECIA [Suspect]
     Active Substance: FINASTERIDE
     Indication: Alopecia
     Dosage: DAILY INTAKE OF 1 TABLET OF PROPECIA, 1 MG/DAY
  2. DIETARY SUPPLEMENT\HERBALS [Suspect]
     Active Substance: DIETARY SUPPLEMENT\HERBALS
     Dosage: UNK

REACTIONS (8)
  - Retinal degeneration [Unknown]
  - Breast cancer male [Recovered/Resolved]
  - Paget^s disease of nipple [Recovered/Resolved]
  - Emotional distress [Unknown]
  - Haematospermia [Unknown]
  - Seminal vesicular cyst [Unknown]
  - Epididymal tenderness [Unknown]
  - Epididymal enlargement [Unknown]

NARRATIVE: CASE EVENT DATE: 20080318
